FAERS Safety Report 6722816-9 (Version None)
Quarter: 2010Q2

REPORT INFORMATION
  Report Type: 
  Country: None (occurrence: None)
  Receive Date: 20100512
  Receipt Date: 20100512
  Transmission Date: 20101027
  Serious: Yes (Hospitalization)
  Sender: FDA-Public Use
  Company Number: None

PATIENT
  Sex: Female
  Weight: 80 kg

DRUGS (3)
  1. CARBOPLATIN [Suspect]
     Dosage: 458 MG
     Dates: end: 20100421
  2. TAXOTERE [Suspect]
     Dosage: 143 MG
     Dates: end: 20100421
  3. TAXOL [Suspect]
     Dosage: 115 MG
     Dates: end: 20100428

REACTIONS (3)
  - DEHYDRATION [None]
  - HYPOPHAGIA [None]
  - NAUSEA [None]
